FAERS Safety Report 9540634 (Version 1)
Quarter: 2013Q3

REPORT INFORMATION
  Report Type: Spontaneous
  Country: US (occurrence: US)
  Receive Date: 20130920
  Receipt Date: 20130920
  Transmission Date: 20140515
  Serious: Yes (Other)
  Sender: FDA-Public Use
  Company Number: CHPA2013US014415

PATIENT
  Age: 10 Year
  Sex: Male

DRUGS (4)
  1. TRANSDERM SCOP [Suspect]
     Indication: DROOLING
     Dosage: 1 DF, Q72H
     Route: 062
     Dates: start: 20130913, end: 20130916
  2. BUDESONIDE [Concomitant]
     Indication: OESOPHAGITIS
     Dosage: UNK,UNK
     Route: 048
     Dates: start: 201308
  3. KEPPRA [Concomitant]
     Indication: CONVULSION
     Dosage: UNK,UNK
  4. TOPAMAX [Concomitant]
     Indication: CONVULSION
     Dosage: UNK,UNK

REACTIONS (4)
  - Hallucination [Recovered/Resolved]
  - Insomnia [Recovered/Resolved]
  - Poor quality sleep [Recovered/Resolved]
  - Therapeutic response unexpected [Recovered/Resolved]
